FAERS Safety Report 4801399-4 (Version None)
Quarter: 2005Q4

REPORT INFORMATION
  Report Type: 
  Country: None (occurrence: None)
  Receive Date: 20051011
  Receipt Date: 20050919
  Transmission Date: 20060501
  Serious: Yes (Hospitalization)
  Sender: FDA-Public Use
  Company Number: US_0504116283

PATIENT
  Age: 40 Year
  Sex: Female
  Weight: 77 kg

DRUGS (9)
  1. ZYPREXA [Suspect]
     Indication: BIPOLAR DISORDER
     Dosage: 20 MG AT BEDTIME
     Dates: start: 20000627
  2. RISPERIDONE [Concomitant]
  3. TRILAFON (PERPHENAZINE ENANTATE) [Concomitant]
  4. STELAZINE [Concomitant]
  5. CELEXA [Concomitant]
  6. TRAZODONE HCL [Concomitant]
  7. KLONOPIN [Concomitant]
  8. WELLBUTRIN SR [Concomitant]
  9. REMERON (MIRTAZEPINE) [Concomitant]

REACTIONS (19)
  - ABNORMAL BEHAVIOUR [None]
  - ANAEMIA [None]
  - DELUSION [None]
  - DIABETES MELLITUS INSULIN-DEPENDENT [None]
  - DIABETIC KETOACIDOSIS [None]
  - DIABETIC NEUROPATHY [None]
  - ELECTROCARDIOGRAM T WAVE INVERSION [None]
  - HALLUCINATION, AUDITORY [None]
  - HEPATIC ENZYME INCREASED [None]
  - HEPATITIS C [None]
  - HEPATOMEGALY [None]
  - HYPERLIPIDAEMIA [None]
  - INSOMNIA [None]
  - LUNG NEOPLASM [None]
  - OVERDOSE [None]
  - PARANOIA [None]
  - SUICIDE ATTEMPT [None]
  - URINARY TRACT INFECTION [None]
  - WEIGHT INCREASED [None]
